FAERS Safety Report 8789273 (Version 1)
Quarter: 2012Q4

REPORT INFORMATION
  Report Type: Spontaneous
  Country: US (occurrence: None)
  Receive Date: 20120910
  Receipt Date: 20120910
  Transmission Date: 20130627
  Serious: Yes (Other)
  Sender: FDA-Public Use
  Company Number: None

PATIENT
  Age: 27 Year
  Sex: Male
  Weight: 92 kg

DRUGS (1)
  1. UNISOM SLEEPTABS [Suspect]
     Indication: SLEEP DISORDER
     Dosage: Infrequently
     Route: 048
     Dates: start: 20111005, end: 20120815

REACTIONS (1)
  - Nightmare [None]
